FAERS Safety Report 18856572 (Version 49)
Quarter: 2024Q4

REPORT INFORMATION
  Report Type: Report from Study
  Country: US (occurrence: US)
  Receive Date: 20210207
  Receipt Date: 20241219
  Transmission Date: 20250114
  Serious: Yes (Hospitalization, Other)
  Sender: TAKEDA
  Company Number: US-SHIRE-US202024901

PATIENT
  Age: 58 Year
  Sex: Female
  Weight: 75 kg

DRUGS (26)
  1. HUMAN IMMUNOGLOBULIN G\HYALURONIDASE RECOMBINANT HUMAN [Suspect]
     Active Substance: HUMAN IMMUNOGLOBULIN G\HYALURONIDASE (HUMAN RECOMBINANT)
     Indication: Primary immunodeficiency syndrome
     Dosage: 40 GRAM, Q3WEEKS
     Dates: start: 20211218
  2. HUMAN IMMUNOGLOBULIN G\HYALURONIDASE RECOMBINANT HUMAN [Suspect]
     Active Substance: HUMAN IMMUNOGLOBULIN G\HYALURONIDASE (HUMAN RECOMBINANT)
     Indication: Rheumatoid arthritis
     Dosage: UNK
  3. HUMAN IMMUNOGLOBULIN G\HYALURONIDASE RECOMBINANT HUMAN [Suspect]
     Active Substance: HUMAN IMMUNOGLOBULIN G\HYALURONIDASE (HUMAN RECOMBINANT)
     Indication: Congenital hypogammaglobulinaemia
     Dosage: 40 GRAM, Q3WEEKS
  4. HUMAN IMMUNOGLOBULIN G\HYALURONIDASE RECOMBINANT HUMAN [Suspect]
     Active Substance: HUMAN IMMUNOGLOBULIN G\HYALURONIDASE (HUMAN RECOMBINANT)
     Indication: Selective IgG subclass deficiency
  5. HUMAN IMMUNOGLOBULIN G\HYALURONIDASE RECOMBINANT HUMAN [Suspect]
     Active Substance: HUMAN IMMUNOGLOBULIN G\HYALURONIDASE (HUMAN RECOMBINANT)
     Indication: Hypogammaglobulinaemia
  6. TIRZEPATIDE [Suspect]
     Active Substance: TIRZEPATIDE
     Indication: Product used for unknown indication
     Dosage: UNK
  7. SODIUM CHLORIDE [Concomitant]
     Active Substance: SODIUM CHLORIDE
     Dosage: UNK
  8. ACETAMINOPHEN [Concomitant]
     Active Substance: ACETAMINOPHEN
     Dosage: UNK
  9. CLONIDINE HYDROCHLORIDE [Concomitant]
     Active Substance: CLONIDINE HYDROCHLORIDE
     Dosage: UNK
  10. TOBRAMYCIN SULFATE [Concomitant]
     Active Substance: TOBRAMYCIN SULFATE
     Dosage: UNK
  11. XOLAIR [Concomitant]
     Active Substance: OMALIZUMAB
     Dosage: UNK
  12. CEFDINIR [Concomitant]
     Active Substance: CEFDINIR
     Dosage: UNK
  13. LOVENOX [Concomitant]
     Active Substance: ENOXAPARIN SODIUM
     Dosage: UNK
  14. LIDOCAINE [Concomitant]
     Active Substance: LIDOCAINE
     Dosage: UNK
  15. HYDROCHLOROTHIAZIDE [Concomitant]
     Active Substance: HYDROCHLOROTHIAZIDE
     Dosage: UNK
  16. DIPHENHYDRAMINE HYDROCHLORIDE [Concomitant]
     Active Substance: DIPHENHYDRAMINE HYDROCHLORIDE
     Dosage: UNK
  17. ALPHA LIPOIC ACID [Concomitant]
     Active Substance: .ALPHA.-LIPOIC ACID
     Dosage: UNK
  18. METFORMIN [Concomitant]
     Active Substance: METFORMIN HYDROCHLORIDE
     Indication: Gastrointestinal disorder
     Dosage: UNK
  19. UBRELVY [Concomitant]
     Active Substance: UBROGEPANT
     Dosage: UNK
  20. ENOXAPARIN [Concomitant]
     Active Substance: ENOXAPARIN
     Indication: Cardiovascular disorder
     Dosage: UNK
  21. RECLAST [Concomitant]
     Active Substance: ZOLEDRONIC ACID
     Indication: Product used for unknown indication
     Dosage: UNK
  22. EPINEPHRINE [Concomitant]
     Active Substance: EPINEPHRINE
     Dosage: UNK
  23. TYMLOS [Concomitant]
     Active Substance: ABALOPARATIDE
     Dosage: UNK
  24. PREDNISONE [Concomitant]
     Active Substance: PREDNISONE
     Dosage: UNK
  25. ONDANSETRON [Concomitant]
     Active Substance: ONDANSETRON
     Dosage: UNK
  26. HYDROXYZINE HYDROCHLORIDE [Concomitant]
     Active Substance: HYDROXYZINE HYDROCHLORIDE
     Dosage: UNK

REACTIONS (66)
  - Urogenital fistula [Unknown]
  - Arterial haemorrhage [Unknown]
  - Coagulopathy [Unknown]
  - Vesical fistula [Unknown]
  - Bladder perforation [Unknown]
  - Spinal disorder [Unknown]
  - Joint injury [Unknown]
  - Urinary tract infection [Not Recovered/Not Resolved]
  - Foot fracture [Unknown]
  - Muscle strain [Unknown]
  - Haemoglobin decreased [Unknown]
  - Intestinal fistula infection [Unknown]
  - Gastrointestinal fistula [Unknown]
  - Autoimmune disorder [Unknown]
  - Pneumonia [Not Recovered/Not Resolved]
  - Cardiac ventricular thrombosis [Unknown]
  - Pulmonary thrombosis [Unknown]
  - Thrombosis [Unknown]
  - Cellulitis [Not Recovered/Not Resolved]
  - Sleep disorder [Unknown]
  - Vitamin C deficiency [Unknown]
  - Respiratory tract infection [Not Recovered/Not Resolved]
  - Productive cough [Unknown]
  - Injection site bruising [Unknown]
  - Infection [Not Recovered/Not Resolved]
  - Blood pressure inadequately controlled [Unknown]
  - Dust allergy [Unknown]
  - Lymphatic disorder [Unknown]
  - Multiple allergies [Unknown]
  - Peripheral swelling [Unknown]
  - Lung disorder [Unknown]
  - Sinusitis [Not Recovered/Not Resolved]
  - Dermatitis contact [Unknown]
  - Alopecia [Unknown]
  - Blister [Unknown]
  - Ear infection [Unknown]
  - Product leakage [Unknown]
  - Pain [Unknown]
  - Product use in unapproved indication [Unknown]
  - Inappropriate schedule of product administration [Unknown]
  - Seasonal allergy [Unknown]
  - COVID-19 [Unknown]
  - Allergy to plants [Unknown]
  - Musculoskeletal discomfort [Unknown]
  - Product dose omission issue [Unknown]
  - Procedural pain [Unknown]
  - Product dose omission in error [Unknown]
  - Cough [Unknown]
  - Migraine [Unknown]
  - Hypersensitivity [Unknown]
  - Tooth abscess [Unknown]
  - Cardiac murmur [Unknown]
  - Road traffic accident [Unknown]
  - Viral infection [Unknown]
  - Illness [Unknown]
  - Dehydration [Unknown]
  - Eye infection [Unknown]
  - Lymphoedema [Unknown]
  - Weight decreased [Unknown]
  - Blood glucose decreased [Unknown]
  - Needle issue [Unknown]
  - Urinary incontinence [Unknown]
  - Hypoaesthesia [Unknown]
  - Balance disorder [Unknown]
  - Back pain [Unknown]
  - Fatigue [Unknown]

NARRATIVE: CASE EVENT DATE: 20211218
